FAERS Safety Report 9417317 (Version 1)
Quarter: 2013Q3

REPORT INFORMATION
  Report Type: Spontaneous
  Country: US (occurrence: US)
  Receive Date: 20130724
  Receipt Date: 20130724
  Transmission Date: 20140515
  Serious: Yes (Hospitalization)
  Sender: FDA-Public Use
  Company Number: US-BRISTOL-MYERS SQUIBB COMPANY-18904508

PATIENT
  Age: 6 Decade
  Sex: Female

DRUGS (2)
  1. ELIQUIS [Suspect]
     Indication: THROMBOSIS PROPHYLAXIS
  2. ELIQUIS [Suspect]
     Indication: THROMBOSIS PROPHYLAXIS

REACTIONS (2)
  - Gastric haemorrhage [Recovered/Resolved]
  - Off label use [Unknown]
